FAERS Safety Report 5675479-8 (Version None)
Quarter: 2008Q1

REPORT INFORMATION
  Report Type: 
  Country: None (occurrence: None)
  Receive Date: 20080321
  Receipt Date: 20080312
  Transmission Date: 20080703
  Serious: Yes (Life-Threatening, Other)
  Sender: FDA-Public Use
  Company Number: ES-JNJFOC-20080300686

PATIENT
  Age: 54 Year
  Sex: Female
  Weight: 63.4 kg

DRUGS (5)
  1. REMICADE [Suspect]
     Indication: CROHN'S DISEASE
     Route: 042
  2. IMUREL [Concomitant]
     Indication: CROHN'S DISEASE
     Route: 048
  3. CLAVERSAL [Concomitant]
     Indication: CROHN'S DISEASE
     Route: 048
  4. RANITIDINE [Concomitant]
     Indication: DYSPEPSIA
     Route: 048
  5. ENTOCORT EC [Concomitant]
     Indication: CROHN'S DISEASE
     Route: 048

REACTIONS (2)
  - METASTATIC NEOPLASM [None]
  - SARCOMA [None]
